FAERS Safety Report 5202663-X (Version None)
Quarter: 2006Q4

REPORT INFORMATION
  Report Type: 
  Country: None (occurrence: None)
  Receive Date: 20061018
  Receipt Date: 20050316
  Transmission Date: 20070319
  Serious: Yes (Other)
  Sender: FDA-Public Use
  Company Number: PHEH2005US03262

PATIENT
  Sex: Female

DRUGS (2)
  1. ZOMETA [Suspect]
     Indication: BREAST CANCER
     Dosage: 4 MG, ONCE/SINGLE, INTRAVENOUS
     Route: 042
     Dates: start: 20030901, end: 20030901
  2. AREDIA [Suspect]
     Indication: BREAST CANCER
     Dates: start: 20031201

REACTIONS (3)
  - BLOOD CREATININE INCREASED [None]
  - PROTEINURIA [None]
  - RENAL FAILURE [None]
